FAERS Safety Report 6801928-5 (Version None)
Quarter: 2010Q2

REPORT INFORMATION
  Report Type: 
  Country: None (occurrence: None)
  Receive Date: 20100629
  Receipt Date: 20100622
  Transmission Date: 20101027
  Serious: Yes (Other)
  Sender: FDA-Public Use
  Company Number: CHPA2010US10654

PATIENT
  Sex: Male

DRUGS (1)
  1. VOLTAREN [Suspect]
     Indication: ARTHRALGIA
     Dosage: UNK, WHENEVER REQUIRED
     Route: 061
     Dates: start: 20091101

REACTIONS (5)
  - ARTHRALGIA [None]
  - DRUG ADMINISTERED AT INAPPROPRIATE SITE [None]
  - HIP ARTHROPLASTY [None]
  - JOINT SWELLING [None]
  - KNEE ARTHROPLASTY [None]
